FAERS Safety Report 7889881-7 (Version None)
Quarter: 2011Q4

REPORT INFORMATION
  Report Type: 
  Country: None (occurrence: None)
  Receive Date: 20111103
  Receipt Date: 20111021
  Transmission Date: 20120403
  Serious: Yes (Hospitalization)
  Sender: FDA-Public Use
  Company Number: US-GLAXOSMITHKLINE-B0756244A

PATIENT
  Sex: Female

DRUGS (4)
  1. AVANDIA [Suspect]
     Indication: DIABETES MELLITUS
     Route: 048
     Dates: start: 20040901, end: 20051001
  2. CRESTOR [Concomitant]
  3. NORVASC [Concomitant]
  4. SYNTHROID [Concomitant]

REACTIONS (7)
  - HYPERTENSION [None]
  - HYPERLIPIDAEMIA [None]
  - OEDEMA [None]
  - HYPOTHYROIDISM [None]
  - ANXIETY [None]
  - PAIN [None]
  - CHEST PAIN [None]
